FAERS Safety Report 16866361 (Version 1)
Quarter: 2019Q3

REPORT INFORMATION
  Report Type: Spontaneous
  Country: US (occurrence: US)
  Receive Date: 20190930
  Receipt Date: 20190930
  Transmission Date: 20191005
  Serious: No
  Sender: FDA-Public Use
  Company Number: US-ALLERGAN-1932881US

PATIENT
  Age: 55 Year
  Sex: Female

DRUGS (4)
  1. FLUOXETINE [Concomitant]
     Active Substance: FLUOXETINE HYDROCHLORIDE
     Dosage: 10 MG
  2. VRAYLAR [Suspect]
     Active Substance: CARIPRAZINE
     Indication: PRODUCT USED FOR UNKNOWN INDICATION
     Dosage: UNK
     Route: 048
     Dates: start: 2019, end: 2019
  3. XANAX [Concomitant]
     Active Substance: ALPRAZOLAM
     Dosage: 1 MG, TID
  4. ANAFRINIL [Concomitant]
     Dosage: 50 MG

REACTIONS (4)
  - Palpitations [Not Recovered/Not Resolved]
  - Obsessive-compulsive disorder [Unknown]
  - Anxiety [Unknown]
  - Cough [Unknown]

NARRATIVE: CASE EVENT DATE: 2019
